FAERS Safety Report 25730574 (Version 2)
Quarter: 2025Q3

REPORT INFORMATION
  Report Type: Spontaneous
  Country: JP (occurrence: JP)
  Receive Date: 20250827
  Receipt Date: 20250904
  Transmission Date: 20251020
  Serious: Yes (Hospitalization)
  Sender: MYLAN
  Company Number: JP-VIATRISJAPAN-2025M1071228AA

PATIENT
  Age: 6 Decade
  Sex: Female

DRUGS (12)
  1. LYRICA [Suspect]
     Active Substance: PREGABALIN
     Indication: Back pain
     Route: 065
  2. LYRICA [Suspect]
     Active Substance: PREGABALIN
  3. LYRICA [Suspect]
     Active Substance: PREGABALIN
  4. LYRICA [Suspect]
     Active Substance: PREGABALIN
     Route: 065
  5. LYRICA [Suspect]
     Active Substance: PREGABALIN
     Route: 065
  6. LYRICA [Suspect]
     Active Substance: PREGABALIN
  7. LYRICA [Suspect]
     Active Substance: PREGABALIN
  8. LYRICA [Suspect]
     Active Substance: PREGABALIN
     Route: 065
  9. LYRICA [Suspect]
     Active Substance: PREGABALIN
     Route: 065
  10. LYRICA [Suspect]
     Active Substance: PREGABALIN
     Route: 065
  11. LYRICA [Suspect]
     Active Substance: PREGABALIN
  12. LYRICA [Suspect]
     Active Substance: PREGABALIN

REACTIONS (1)
  - Mental disorder [Recovered/Resolved]
